FAERS Safety Report 8444887-4 (Version None)
Quarter: 2012Q2

REPORT INFORMATION
  Report Type: 
  Country: None (occurrence: None)
  Receive Date: 20120612
  Receipt Date: 20120612
  Transmission Date: 20120825
  Serious: Yes (Other)
  Sender: FDA-Public Use
  Company Number: None

PATIENT
  Age: 65 Year
  Sex: Male
  Weight: 77.1115 kg

DRUGS (1)
  1. INTELENCE [Suspect]
     Indication: ANTIVIRAL TREATMENT
     Dosage: 1 TABLET, TWICE DAILY, PO
     Route: 048

REACTIONS (5)
  - PARAESTHESIA [None]
  - FAECAL INCONTINENCE [None]
  - INFREQUENT BOWEL MOVEMENTS [None]
  - GASTROINTESTINAL DISORDER [None]
  - GRIP STRENGTH DECREASED [None]
